FAERS Safety Report 9675010 (Version 1)
Quarter: 2013Q4

REPORT INFORMATION
  Report Type: Spontaneous
  Country: US (occurrence: None)
  Receive Date: 20131106
  Receipt Date: 20131106
  Transmission Date: 20140711
  Serious: No
  Sender: FDA-Public Use
  Company Number: None

PATIENT
  Age: 65 Year
  Sex: Male
  Weight: 87.4 kg

DRUGS (3)
  1. BACLOFEN 10MG [Suspect]
     Indication: BACK PAIN
     Dosage: 1 TABLET TID ORAL
  2. BACLOFEN 10MG [Suspect]
     Indication: NECK PAIN
     Dosage: 1 TABLET TID ORAL
  3. BACLOFEN 10MG [Suspect]
     Indication: SPINAL FUSION SURGERY
     Dosage: 1 TABLET TID ORAL

REACTIONS (3)
  - Fall [None]
  - Neurotoxicity [None]
  - Somnolence [None]
